FAERS Safety Report 8816537 (Version 1)
Quarter: 2012Q4

REPORT INFORMATION
  Report Type: Spontaneous
  Country: US (occurrence: None)
  Receive Date: 20120927
  Receipt Date: 20120927
  Transmission Date: 20130627
  Serious: Yes (Death)
  Sender: FDA-Public Use
  Company Number: PRED20120055

PATIENT
  Age: 53 Year
  Sex: Female

DRUGS (2)
  1. PREDNISONE [Suspect]
     Indication: RETINAL PIGMENT EPITHELIOPATHY
     Route: 048
  2. PREDNISONE [Suspect]
     Indication: RETINAL PIGMENT EPITHELIOPATHY
     Dosage: Dose tapered to 20 mg/day over 5 days, Oral
     Route: 048

REACTIONS (5)
  - Vasculitis cerebral [None]
  - Respiratory distress [None]
  - Cerebral infarction [None]
  - Brain midline shift [None]
  - Brain herniation [None]
